FAERS Safety Report 4726336-2 (Version None)
Quarter: 2005Q3

REPORT INFORMATION
  Report Type: 
  Country: None (occurrence: None)
  Receive Date: 20050725
  Receipt Date: 20050712
  Transmission Date: 20060218
  Serious: Yes (Other)
  Sender: FDA-Public Use
  Company Number: 2005060800

PATIENT
  Sex: Female

DRUGS (10)
  1. DETROL LA [Suspect]
     Indication: INCONTINENCE
     Dosage: 4 MG (4 MG, 1 IN 2 D), ORAL
     Route: 048
     Dates: start: 20050101
  2. HYDROCHLOROTHIAZIDE [Suspect]
     Indication: HYPERTENSION
     Dosage: ORAL
     Route: 048
     Dates: start: 20041101
  3. LORAZEPAM [Concomitant]
  4. CARBAMAZEPINE [Concomitant]
  5. LEVOTHYROXINE SODIUM [Concomitant]
  6. FLEXERIL [Concomitant]
  7. TRAZODONE (TRAZODONE) [Concomitant]
  8. LODINE [Concomitant]
  9. WELLBUTRIN XL (BUPROPIN HYDROCHLORIDE) [Concomitant]
  10. LEXAPRO [Concomitant]

REACTIONS (8)
  - CONSTIPATION [None]
  - DIZZINESS [None]
  - DRY MOUTH [None]
  - HYPERTENSION [None]
  - MASTOIDITIS [None]
  - PARKINSON'S DISEASE [None]
  - TRANSIENT ISCHAEMIC ATTACK [None]
  - TREMOR [None]
